FAERS Safety Report 18608018 (Version 2)
Quarter: 2021Q2

REPORT INFORMATION
  Report Type: Other
  Country: CA (occurrence: CA)
  Receive Date: 20201211
  Receipt Date: 20210517
  Transmission Date: 20210717
  Serious: Yes (Other)
  Sender: FDA-Public Use
  Company Number: CA-CELLTRION INC.-2020CA033354

PATIENT

DRUGS (27)
  1. RITUXIMAB (UNKNOWN) [Suspect]
     Active Substance: RITUXIMAB
     Dosage: UNK
     Route: 042
  2. ACETAMINOPHEN. [Concomitant]
     Active Substance: ACETAMINOPHEN
     Indication: PREMEDICATION
     Dosage: 650 MILLIGRAM
     Route: 048
  3. ACETAMINOPHEN AND CODEINE [Concomitant]
     Active Substance: ACETAMINOPHEN\CODEINE PHOSPHATE
  4. DIAMICRON [Concomitant]
     Active Substance: GLICLAZIDE
  5. DUTASTERIDE. [Concomitant]
     Active Substance: DUTASTERIDE
  6. FOLIC ACID. [Concomitant]
     Active Substance: FOLIC ACID
  7. METHYLPREDNISOLONE. [Concomitant]
     Active Substance: METHYLPREDNISOLONE
     Indication: PREMEDICATION
     Dosage: 100 MILLIGRAM
     Route: 042
  8. PRAMIPEXOLE. [Concomitant]
     Active Substance: PRAMIPEXOLE
  9. PREMARIN [Concomitant]
     Active Substance: ESTROGENS, CONJUGATED
  10. RISEDRONATE [Concomitant]
     Active Substance: RISEDRONATE SODIUM
  11. PANTOLOC [PANTOPRAZOLE] [Concomitant]
     Active Substance: PANTOPRAZOLE SODIUM
  12. RITUXIMAB (UNKNOWN) [Suspect]
     Active Substance: RITUXIMAB
     Dosage: 1000 MILLIGRAM
     Route: 042
  13. CELEBREX [Concomitant]
     Active Substance: CELECOXIB
  14. PREDNISONE. [Concomitant]
     Active Substance: PREDNISONE
  15. ONGLYZA [Suspect]
     Active Substance: SAXAGLIPTIN HYDROCHLORIDE
     Indication: DIABETES MELLITUS
     Route: 065
  16. METHOTREXATE. [Concomitant]
     Active Substance: METHOTREXATE
     Route: 048
  17. OXAZEPAM. [Concomitant]
     Active Substance: OXAZEPAM
  18. VESICARE [Concomitant]
     Active Substance: SOLIFENACIN SUCCINATE
  19. RITUXIMAB (UNKNOWN) [Suspect]
     Active Substance: RITUXIMAB
     Indication: RHEUMATOID ARTHRITIS
     Dosage: UNK
     Route: 042
  20. RITUXIMAB (UNKNOWN) [Suspect]
     Active Substance: RITUXIMAB
     Dosage: UNK
     Route: 042
  21. METFORMIN [Concomitant]
     Active Substance: METFORMIN HYDROCHLORIDE
     Route: 065
  22. INSULIN [Concomitant]
     Active Substance: INSULIN NOS
  23. DIPHENHYDRAMINE HYDROCHLORIDE. [Concomitant]
     Active Substance: DIPHENHYDRAMINE HYDROCHLORIDE
     Indication: PREMEDICATION
     Dosage: 50 MILLIGRAM
     Route: 048
  24. INSULIN HUMAN [Concomitant]
     Active Substance: INSULIN HUMAN
     Route: 065
  25. PANTOPRAZOLE [Concomitant]
     Active Substance: PANTOPRAZOLE
  26. ACTEMRA [Suspect]
     Active Substance: TOCILIZUMAB
     Indication: RHEUMATOID ARTHRITIS
     Dosage: 680 MILLIGRAM, 1 EVERY 4 WEEKS
     Route: 042
  27. HYDROMORPHONE HYDROCHLORIDE. [Concomitant]
     Active Substance: HYDROMORPHONE HYDROCHLORIDE

REACTIONS (31)
  - Thermal burn [Not Recovered/Not Resolved]
  - Pharyngeal oedema [Not Recovered/Not Resolved]
  - Joint stiffness [Not Recovered/Not Resolved]
  - Arthralgia [Not Recovered/Not Resolved]
  - Cyst [Not Recovered/Not Resolved]
  - Neuralgia [Not Recovered/Not Resolved]
  - Fatigue [Not Recovered/Not Resolved]
  - Sinusitis [Not Recovered/Not Resolved]
  - Blood pressure systolic increased [Not Recovered/Not Resolved]
  - Decreased appetite [Not Recovered/Not Resolved]
  - Blood pressure fluctuation [Not Recovered/Not Resolved]
  - Erythema [Not Recovered/Not Resolved]
  - Infusion related reaction [Not Recovered/Not Resolved]
  - Fall [Not Recovered/Not Resolved]
  - Acne [Not Recovered/Not Resolved]
  - Oxygen saturation decreased [Not Recovered/Not Resolved]
  - Pain in extremity [Not Recovered/Not Resolved]
  - Hypertension [Not Recovered/Not Resolved]
  - Blood glucose increased [Not Recovered/Not Resolved]
  - Blood pressure diastolic abnormal [Not Recovered/Not Resolved]
  - Feeling of body temperature change [Not Recovered/Not Resolved]
  - Rash [Not Recovered/Not Resolved]
  - Heart rate decreased [Not Recovered/Not Resolved]
  - Loss of consciousness [Not Recovered/Not Resolved]
  - Diarrhoea [Not Recovered/Not Resolved]
  - Dizziness [Not Recovered/Not Resolved]
  - Nasopharyngitis [Not Recovered/Not Resolved]
  - Scab [Not Recovered/Not Resolved]
  - Asthenia [Not Recovered/Not Resolved]
  - Blood pressure diastolic decreased [Not Recovered/Not Resolved]
  - Nausea [Not Recovered/Not Resolved]
